FAERS Safety Report 18365071 (Version 1)
Quarter: 2020Q4

REPORT INFORMATION
  Report Type: Spontaneous
  Country: US (occurrence: US)
  Receive Date: 20201009
  Receipt Date: 20201009
  Transmission Date: 20210114
  Serious: Yes (Hospitalization, Other)
  Sender: FDA-Public Use
  Company Number: US-HIKMA PHARMACEUTICALS USA INC.-US-H14001-20-04630

PATIENT
  Age: 61 Year
  Sex: Male

DRUGS (7)
  1. DURVALUMAB. [Suspect]
     Active Substance: DURVALUMAB
     Indication: CHOLANGIOCARCINOMA
     Dosage: UNKNOWN
     Route: 065
  2. GEMZAR [Suspect]
     Active Substance: GEMCITABINE HYDROCHLORIDE
     Indication: CHOLANGIOCARCINOMA
     Dosage: UNKNOWN
     Route: 065
  3. CISPLATIN. [Suspect]
     Active Substance: CISPLATIN
     Indication: CHOLANGIOCARCINOMA
     Dosage: UNKNOWN
     Route: 065
  4. GEMCITABINE. [Suspect]
     Active Substance: GEMCITABINE
     Indication: CHOLANGIOCARCINOMA
     Dosage: UNKNOWN
     Route: 065
  5. LEUCOVORIN. [Suspect]
     Active Substance: LEUCOVORIN
     Indication: CHOLANGIOCARCINOMA
     Dosage: UNKNOWN
     Route: 065
     Dates: end: 20200817
  6. FLUOROURACIL. [Suspect]
     Active Substance: FLUOROURACIL
     Indication: CHOLANGIOCARCINOMA
     Dosage: UNKNOWN
     Route: 065
     Dates: end: 20200817
  7. IRINOTECAN [Suspect]
     Active Substance: IRINOTECAN
     Indication: CHOLANGIOCARCINOMA
     Dosage: UNKNOWN
     Route: 065
     Dates: end: 20200817

REACTIONS (12)
  - Fall [Unknown]
  - Shock [Unknown]
  - Diarrhoea haemorrhagic [Unknown]
  - Hemiparesis [Unknown]
  - Febrile neutropenia [Unknown]
  - Sepsis [Unknown]
  - Diarrhoea [Unknown]
  - Vena cava thrombosis [Unknown]
  - Hypotension [Recovered/Resolved]
  - Leukocytosis [Unknown]
  - Acute kidney injury [Unknown]
  - Hypovolaemic shock [Unknown]

NARRATIVE: CASE EVENT DATE: 20200820
